FAERS Safety Report 4383932-2 (Version None)
Quarter: 2004Q2

REPORT INFORMATION
  Report Type: 
  Country: None (occurrence: None)
  Receive Date: 20040623
  Receipt Date: 20040623
  Transmission Date: 20050107
  Serious: Yes (Other)
  Sender: FDA-Public Use
  Company Number: None

PATIENT
  Sex: Male
  Weight: 88.905 kg

DRUGS (2)
  1. SULFASALAZINE [Suspect]
     Indication: COLITIS
     Dosage: 1000 MG BID
     Dates: start: 20031001
  2. SULFASALAZINE [Suspect]
     Indication: PROCTITIS
     Dosage: 1000 MG BID
     Dates: start: 20031001

REACTIONS (2)
  - STEVENS-JOHNSON SYNDROME [None]
  - SYNCOPE [None]
